FAERS Safety Report 7042829-X (Version None)
Quarter: 2010Q4

REPORT INFORMATION
  Report Type: 
  Country: None (occurrence: None)
  Receive Date: 20101013
  Receipt Date: 20091002
  Transmission Date: 20110411
  Serious: No
  Sender: FDA-Public Use
  Company Number: US-ASTRAZENECA-2009SE17578

PATIENT
  Age: 58 Year
  Sex: Female
  Weight: 49 kg

DRUGS (12)
  1. SYMBICORT [Suspect]
     Indication: CHRONIC OBSTRUCTIVE PULMONARY DISEASE
     Route: 055
  2. PRILOSEC OTC [Suspect]
     Route: 048
  3. GASEX [Concomitant]
  4. PREDNISONE [Concomitant]
  5. NEURONTIN [Concomitant]
     Indication: NERVE INJURY
  6. METHADONE [Concomitant]
  7. DEPLIN [Concomitant]
  8. LOPRESSOR [Concomitant]
  9. M.V.I. [Concomitant]
  10. LOVAZA [Concomitant]
  11. CALCIUM [Concomitant]
  12. VITAMIN D [Concomitant]

REACTIONS (1)
  - DYSGEUSIA [None]
